FAERS Safety Report 6622120-3 (Version None)
Quarter: 2010Q1

REPORT INFORMATION
  Report Type: 
  Country: None (occurrence: None)
  Receive Date: 20100303
  Receipt Date: 20100226
  Transmission Date: 20100710
  Serious: Yes (Death, Hospitalization)
  Sender: FDA-Public Use
  Company Number: 2010SP000662

PATIENT
  Age: 79 Year
  Sex: Female
  Weight: 84 kg

DRUGS (14)
  1. TEMOZOLOMIDE [Suspect]
     Indication: GLIOBLASTOMA
     Dosage: 135 MG;QD;PO
     Route: 048
     Dates: start: 20091201, end: 20091221
  2. TEMOZOLOMIDE [Suspect]
  3. TEMOZOLOMIDE [Suspect]
  4. ZANTAC [Concomitant]
  5. PENTASA [Concomitant]
  6. UNI DIAMICRON [Concomitant]
  7. KREDEX [Concomitant]
  8. COZAAR [Concomitant]
  9. ZOCOR [Concomitant]
  10. DAFALGAN [Concomitant]
  11. KEPPRA [Concomitant]
  12. XANAX [Concomitant]
  13. IMOVANE [Concomitant]
  14. MEDROL [Concomitant]

REACTIONS (5)
  - EPISTAXIS [None]
  - FEBRILE NEUTROPENIA [None]
  - MOUTH HAEMORRHAGE [None]
  - NEUTROPENIC SEPSIS [None]
  - PANCYTOPENIA [None]
